FAERS Safety Report 17159870 (Version 1)
Quarter: 2019Q4

REPORT INFORMATION
  Report Type: Spontaneous
  Country: SE (occurrence: SE)
  Receive Date: 20191216
  Receipt Date: 20191216
  Transmission Date: 20200122
  Serious: Yes (Hospitalization, Other)
  Sender: FDA-Public Use
  Company Number: SE-SA-2019SA343795

PATIENT
  Sex: Female

DRUGS (4)
  1. MELATONIN [Suspect]
     Active Substance: MELATONIN
     Dosage: 28 MG, UNK
     Route: 048
     Dates: start: 20180916, end: 20180916
  2. PROPAVAN [Suspect]
     Active Substance: PROPIOMAZINE
     Dosage: UNK UNK, UNK, 10 PIECES PROPAVAN
     Route: 048
     Dates: start: 20180916, end: 20180916
  3. HYDROXYZINE [Suspect]
     Active Substance: HYDROXYZINE HYDROCHLORIDE
     Dosage: 625 MG, UNK
     Route: 048
     Dates: start: 20180916, end: 20180916
  4. IMOVANE [Suspect]
     Active Substance: ZOPICLONE
     Dosage: 30 MG, UNK
     Route: 048
     Dates: start: 20180916, end: 20180916

REACTIONS (2)
  - Intentional overdose [Unknown]
  - Intentional self-injury [Unknown]

NARRATIVE: CASE EVENT DATE: 20180916
